FAERS Safety Report 9914557 (Version 1)
Quarter: 2014Q1

REPORT INFORMATION
  Report Type: Spontaneous
  Country: US (occurrence: US)
  Receive Date: 20140220
  Receipt Date: 20140220
  Transmission Date: 20141002
  Serious: Yes (Other)
  Sender: FDA-Public Use
  Company Number: PHHY2014US018283

PATIENT
  Age: 33 Year
  Sex: Female

DRUGS (7)
  1. EVEROLIMUS [Suspect]
     Indication: IMMUNOSUPPRESSION
     Dosage: 0.75 MG, DAILY
     Route: 048
  2. EVEROLIMUS [Suspect]
     Dosage: 0.5 MG, BID
     Route: 048
  3. PREDNISONE [Suspect]
     Indication: IMMUNOSUPPRESSION
     Dosage: 5 MG, UNK
  4. AZATHIOPRINE [Suspect]
     Indication: IMMUNOSUPPRESSION
     Dosage: 50 MG, DAILY
  5. TACROLIMUS [Suspect]
     Indication: IMMUNOSUPPRESSION
  6. PRENATAL VITAMINS [Suspect]
  7. MYCOPHENOLATE MOFETIL [Suspect]
     Indication: IMMUNOSUPPRESSION

REACTIONS (6)
  - Nephropathy toxic [Unknown]
  - Urine protein/creatinine ratio increased [Recovering/Resolving]
  - Blood pressure increased [Recovering/Resolving]
  - Pyrexia [Recovered/Resolved]
  - Maternal exposure during pregnancy [Unknown]
  - Diarrhoea [Unknown]
